FAERS Safety Report 9231265 (Version 3)
Quarter: 2013Q2

REPORT INFORMATION
  Report Type: Spontaneous
  Country: IN (occurrence: IN)
  Receive Date: 20130415
  Receipt Date: 20130524
  Transmission Date: 20140414
  Serious: Yes (Life-Threatening, Hospitalization, Other)
  Sender: FDA-Public Use
  Company Number: IN-ELI_LILLY_AND_COMPANY-IN201302000533

PATIENT
  Age: 18 Year
  Sex: Male

DRUGS (4)
  1. OLANZAPINE [Suspect]
     Indication: BIPOLAR DISORDER
     Dosage: 10 MG, QD
  2. OLANZAPINE [Suspect]
     Dosage: 20 MG, QD
  3. ARIPIPRAZOLE [Concomitant]
     Dosage: 15 MG, BID
  4. SERTRALINE [Concomitant]
     Dosage: 100 MG, QD

REACTIONS (2)
  - Neuroleptic malignant syndrome [Recovered/Resolved]
  - Tuberculosis [Unknown]
